FAERS Safety Report 4767012-X (Version None)
Quarter: 2005Q3

REPORT INFORMATION
  Report Type: 
  Country: None (occurrence: None)
  Receive Date: 20050908
  Receipt Date: 20050812
  Transmission Date: 20060218
  Serious: Yes (Hospitalization)
  Sender: FDA-Public Use
  Company Number: 6016643

PATIENT
  Age: 77 Year
  Sex: Male

DRUGS (2)
  1. DAPA-TABS (TABLET) (INDAPAMIDE) [Suspect]
     Dosage: ORAL
     Route: 048
  2. GRAPEFRUIT JUICE(CITRUS PARADIS FRUIT JUICE) [Suspect]

REACTIONS (4)
  - DEHYDRATION [None]
  - DRUG INTERACTION [None]
  - RENAL FAILURE ACUTE [None]
  - SYNCOPE [None]
